FAERS Safety Report 16158576 (Version 1)
Quarter: 2019Q2

REPORT INFORMATION
  Report Type: Spontaneous
  Country: US (occurrence: US)
  Receive Date: 20190404
  Receipt Date: 20190404
  Transmission Date: 20190711
  Serious: Yes (Hospitalization)
  Sender: FDA-Public Use
  Company Number: US-SA-2019SA084108

PATIENT

DRUGS (2)
  1. IODINE. [Concomitant]
     Active Substance: IODINE
     Dosage: UNK UNK, UNK
  2. THYROGEN [Suspect]
     Active Substance: THYROTROPIN ALFA
     Dosage: UNK, QD

REACTIONS (2)
  - Inflammation [Unknown]
  - Swelling [Unknown]
